FAERS Safety Report 11618308 (Version 3)
Quarter: 2017Q2

REPORT INFORMATION
  Report Type: Report from Study
  Country: GB (occurrence: GB)
  Receive Date: 20151012
  Receipt Date: 20170612
  Transmission Date: 20170829
  Serious: Yes (Other)
  Sender: FDA-Public Use
  Company Number: GB-ROCHE-1643777

PATIENT
  Age: 71 Year
  Sex: Female

DRUGS (6)
  1. TAXOL [Concomitant]
     Active Substance: PACLITAXEL
  2. BEVACIZUMAB [Suspect]
     Active Substance: BEVACIZUMAB
     Indication: OVARIAN CANCER
     Dosage: LAST DOSE PRIOR TO SAE- 07/OCT/2014
     Route: 042
     Dates: start: 20130722
  3. DALTEPARIN [Concomitant]
     Active Substance: DALTEPARIN
     Route: 065
  4. ESCITALOPRAM [Concomitant]
     Active Substance: ESCITALOPRAM OXALATE
     Route: 065
  5. ZOPICLON [Concomitant]
     Active Substance: ZOPICLONE
     Route: 065
  6. PARACETAMOL [Concomitant]
     Active Substance: ACETAMINOPHEN
     Dosage: PRN
     Route: 065

REACTIONS (1)
  - Seizure [Recovered/Resolved]

NARRATIVE: CASE EVENT DATE: 20150925
